FAERS Safety Report 23943216 (Version 1)
Quarter: 2024Q2

REPORT INFORMATION
  Report Type: Report from Study
  Country: JP (occurrence: JP)
  Receive Date: 20240605
  Receipt Date: 20240605
  Transmission Date: 20240716
  Serious: Yes (Other)
  Sender: FDA-Public Use
  Company Number: JP-Eisai-EC-2024-166893

PATIENT
  Age: 72 Year
  Sex: Female
  Weight: 82.3 kg

DRUGS (4)
  1. LEQEMBI [Suspect]
     Active Substance: LECANEMAB-IRMB
     Indication: Cognitive disorder
     Dosage: FREQUENCY UNKNOWN
     Route: 042
     Dates: start: 20240312, end: 20240312
  2. LEQEMBI [Suspect]
     Active Substance: LECANEMAB-IRMB
     Dosage: FREQUENCY UNKNOWN
     Route: 041
     Dates: start: 20240403
  3. POLARAMINE [Concomitant]
     Active Substance: DEXCHLORPHENIRAMINE MALEATE
     Indication: Product used for unknown indication
     Route: 048
  4. ACETAMINOPHEN [Concomitant]
     Active Substance: ACETAMINOPHEN
     Indication: Product used for unknown indication
     Route: 048

REACTIONS (1)
  - Seizure [Unknown]

NARRATIVE: CASE EVENT DATE: 20240403
